FAERS Safety Report 24368170 (Version 1)
Quarter: 2024Q3

REPORT INFORMATION
  Report Type: Spontaneous
  Country: US (occurrence: US)
  Receive Date: 20240926
  Receipt Date: 20240926
  Transmission Date: 20241017
  Serious: Yes (Other)
  Sender: BRISTOL MYERS SQUIBB
  Company Number: US-BRISTOL-MYERS SQUIBB COMPANY-2024-150531

PATIENT
  Age: 61 Year
  Sex: Female
  Weight: 64.5 kg

DRUGS (16)
  1. REVLIMID [Suspect]
     Active Substance: LENALIDOMIDE
     Indication: Product used for unknown indication
     Dosage: FREQUENCY: 1 CAPSULE DAILY ON DAYS 1-14 OF A 21 DAY CYCLE
     Route: 048
     Dates: start: 20230608
  2. ACYCLOVIR [Concomitant]
     Active Substance: ACYCLOVIR
  3. ASPIRIN [Concomitant]
     Active Substance: ASPIRIN
  4. DEXAMETHASONE [Concomitant]
     Active Substance: DEXAMETHASONE
  5. DICLOFENAC [Concomitant]
     Active Substance: DICLOFENAC
  6. GABAPENTIN [Concomitant]
     Active Substance: GABAPENTIN
  7. TRAMADOL [Concomitant]
     Active Substance: TRAMADOL\TRAMADOL HYDROCHLORIDE
  8. ERGOCALCIFEROL [Concomitant]
     Active Substance: ERGOCALCIFEROL
  9. SINGULAIR [Concomitant]
     Active Substance: MONTELUKAST SODIUM
  10. CALCIUM [Concomitant]
     Active Substance: CALCIUM
  11. AMLODIPINE [Concomitant]
     Active Substance: AMLODIPINE BESYLATE
  12. HYDROCHLOROTHIAZIDE [Concomitant]
     Active Substance: HYDROCHLOROTHIAZIDE
  13. ELIDEL [Concomitant]
     Active Substance: PIMECROLIMUS
  14. CYCLOBENZAPRINE [Concomitant]
     Active Substance: CYCLOBENZAPRINE
  15. NYSTOP [Concomitant]
     Active Substance: NYSTATIN
  16. CLOBETASOL [Concomitant]
     Active Substance: CLOBETASOL

REACTIONS (3)
  - Neuropathy peripheral [Unknown]
  - Wound [Not Recovered/Not Resolved]
  - Laboratory test abnormal [Recovering/Resolving]
